FAERS Safety Report 10233646 (Version 1)
Quarter: 2014Q2

REPORT INFORMATION
  Report Type: Spontaneous
  Country: AU (occurrence: None)
  Receive Date: 20140610
  Receipt Date: 20140610
  Transmission Date: 20141212
  Serious: Yes (Death, Hospitalization)
  Sender: FDA-Public Use
  Company Number: AUR-APL-2014-06185

PATIENT
  Age: 59 Year
  Sex: Male
  Weight: 150 kg

DRUGS (10)
  1. CIPROFLOXACIN  (CIPROFLOXACIN) [Suspect]
     Indication: PRODUCT USED FOR UNKNOWN INDICATION
  2. QUETIAPINE  (QUETIAPINE) [Suspect]
     Indication: PRODUCT USED FOR UNKNOWN INDICATION
  3. PIPERACILLIN + TAZOBACTAM [Suspect]
     Indication: PRODUCT USED FOR UNKNOWN INDICATION
  4. ANIDULAFUNGIN [Suspect]
     Indication: PRODUCT USED FOR UNKNOWN INDICATION
     Route: 042
  5. LEPIRUDIN [Suspect]
     Indication: PRODUCT USED FOR UNKNOWN INDICATION
  6. MEROPENEM [Suspect]
     Indication: PRODUCT USED FOR UNKNOWN INDICATION
  7. VANCOMYCIN HYDROCHLORIDE [Suspect]
     Indication: PRODUCT USED FOR UNKNOWN INDICATION
  8. ATENOLOL (ATENOLOL) [Concomitant]
  9. FLUCONAZOLE (FLUCONAZOLE) [Concomitant]
  10. INDAPAMIDE HEMIHYDRATE-PERINDOPRIL (INDAPAMIDE W/PERINDOPRIL) [Concomitant]

REACTIONS (5)
  - Rash maculo-papular [None]
  - Electrocardiogram QT prolonged [None]
  - Cellulitis [None]
  - Septic shock [None]
  - Pruritus [None]
